FAERS Safety Report 5977773-X (Version None)
Quarter: 2008Q4

REPORT INFORMATION
  Report Type: 
  Country: None (occurrence: None)
  Receive Date: 20081202
  Receipt Date: 20081202
  Transmission Date: 20090506
  Serious: Yes (Other)
  Sender: FDA-Public Use
  Company Number: None

PATIENT
  Age: 67 Year
  Sex: Female
  Weight: 62.5964 kg

DRUGS (2)
  1. NABUMETONE [Suspect]
     Dosage: TWO TABLETS ONCE DAILY PO
     Route: 048
     Dates: start: 20081125, end: 20081126
  2. HYDROCODONE BITARTRATE [Concomitant]

REACTIONS (3)
  - HYPOAESTHESIA [None]
  - PARAESTHESIA [None]
  - SCIATICA [None]
